FAERS Safety Report 6620914-1 (Version None)
Quarter: 2010Q1

REPORT INFORMATION
  Report Type: 
  Country: None (occurrence: None)
  Receive Date: 20100308
  Receipt Date: 20100308
  Transmission Date: 20100710
  Serious: No
  Sender: FDA-Public Use
  Company Number: None

PATIENT
  Sex: Female
  Weight: 74.8435 kg

DRUGS (1)
  1. ADDERALL XR 20 [Suspect]
     Indication: ATTENTION DEFICIT/HYPERACTIVITY DISORDER
     Dosage: 20MG BID PO
     Route: 048
     Dates: start: 20100209, end: 20100210

REACTIONS (7)
  - AGGRESSION [None]
  - AGITATION [None]
  - ANXIETY [None]
  - DRUG DISPENSING ERROR [None]
  - DRUG INEFFECTIVE [None]
  - MOOD ALTERED [None]
  - PRODUCT SUBSTITUTION ISSUE [None]
